FAERS Safety Report 9879905 (Version 1)
Quarter: 2014Q1

REPORT INFORMATION
  Report Type: Report from Study
  Country: US (occurrence: US)
  Receive Date: 20140206
  Receipt Date: 20140206
  Transmission Date: 20141002
  Serious: Yes (Hospitalization, Other)
  Sender: FDA-Public Use
  Company Number: US-ROCHE-1344271

PATIENT
  Sex: Male

DRUGS (2)
  1. LUCENTIS [Suspect]
     Indication: MACULAR DEGENERATION
     Dosage: BOTH EYES
     Route: 065
  2. NORCO [Concomitant]
     Indication: ANALGESIC THERAPY
     Dosage: FOR 7 DAYS
     Route: 048

REACTIONS (2)
  - Vascular graft [Unknown]
  - Macular degeneration [Unknown]
